FAERS Safety Report 21664013 (Version 1)
Quarter: 2022Q4

REPORT INFORMATION
  Report Type: Spontaneous
  Country: DE (occurrence: DE)
  Receive Date: 20221130
  Receipt Date: 20221130
  Transmission Date: 20230113
  Serious: Yes (Hospitalization, Other)
  Sender: FDA-Public Use
  Company Number: DE-SANOFI-01260532

PATIENT
  Sex: Female

DRUGS (5)
  1. LEMTRADA [Suspect]
     Active Substance: ALEMTUZUMAB
     Indication: Relapsing multiple sclerosis
     Dosage: 12 MG, QD
     Route: 041
     Dates: start: 20181009, end: 20181013
  2. METHYLPREDNISOLONE [Concomitant]
     Active Substance: METHYLPREDNISOLONE
     Indication: Prophylaxis
     Dosage: 1000 MG
     Dates: start: 20181009
  3. DIMETHINDENE [Concomitant]
     Active Substance: DIMETHINDENE
     Dosage: UNK
     Route: 042
  4. PANTOPRAZOLE [Concomitant]
     Active Substance: PANTOPRAZOLE
     Dosage: UNK
     Route: 048
  5. IBUPROFEN [Concomitant]
     Active Substance: IBUPROFEN
     Dosage: UNK
     Route: 048

REACTIONS (12)
  - Thrombocytopenia [Recovered/Resolved]
  - Haemoptysis [Recovered/Resolved]
  - Bradycardia [Unknown]
  - Basedow^s disease [Unknown]
  - Blood thyroid stimulating hormone increased [Unknown]
  - Neutrophil count increased [Unknown]
  - Taste disorder [Unknown]
  - Oropharyngeal pain [Unknown]
  - Eye operation [Unknown]
  - Rash [Recovered/Resolved]
  - Lymphocyte percentage decreased [Unknown]
  - Eosinophil percentage decreased [Unknown]

NARRATIVE: CASE EVENT DATE: 20181009
